FAERS Safety Report 7581631-7 (Version None)
Quarter: 2011Q2

REPORT INFORMATION
  Report Type: 
  Country: None (occurrence: None)
  Receive Date: 20110629
  Receipt Date: 20110622
  Transmission Date: 20111010
  Serious: Yes (Hospitalization)
  Sender: FDA-Public Use
  Company Number: CA-AMGEN-CANSP2011032043

PATIENT
  Age: 79 Year
  Sex: Female
  Weight: 45 kg

DRUGS (10)
  1. VITAMIN A [Concomitant]
     Dosage: 1000 IU, BID
  2. TYLENOL (CAPLET) [Concomitant]
     Dosage: UNK UNK, PRN
  3. VITAMIN A [Concomitant]
     Dosage: 2000 IU, QD
  4. LACTULOSE [Concomitant]
     Dosage: UNK UNK, PRN
  5. ASPIRIN [Concomitant]
     Dosage: 325 MG, BID
  6. NICOTINE [Concomitant]
  7. SEROQUEL [Concomitant]
  8. ASPIRIN [Concomitant]
     Dosage: 325 MG, TID
  9. PROLIA [Suspect]
     Indication: OSTEOPOROSIS
     Dosage: 60 MG, Q6MO
     Route: 058
  10. COD LIVER OIL [Concomitant]
     Dosage: UNK UNK, QD

REACTIONS (6)
  - MUSCLE SPASMS [None]
  - SYNCOPE [None]
  - DYSSTASIA [None]
  - ASTHENIA [None]
  - FALL [None]
  - MUSCULOSKELETAL STIFFNESS [None]
